FAERS Safety Report 20605767 (Version 1)
Quarter: 2022Q1

REPORT INFORMATION
  Report Type: Spontaneous
  Country: NL (occurrence: NL)
  Receive Date: 20220317
  Receipt Date: 20220317
  Transmission Date: 20220424
  Serious: Yes (Hospitalization)
  Sender: FDA-Public Use
  Company Number: None

PATIENT
  Sex: Male
  Weight: 74 kg

DRUGS (4)
  1. AMOXICILLIN [Suspect]
     Active Substance: AMOXICILLIN
     Indication: Pneumonia
     Dosage: 225 MILLIGRAM DAILY; 3 PER DAY 1 PIECE,  FORM STRENGTH: 750MG / BRAND NAME NOT SPECIFIED
     Dates: start: 20220126, end: 20220131
  2. SIMVASTATIN [Concomitant]
     Active Substance: SIMVASTATIN
     Dosage: FORM STRENGTH: 20MG / BRAND NAME NOT SPECIFIED, THERAPY START DATE AND END DATE: ASKU
  3. CALCIUM\CHOLECALCIFEROL [Concomitant]
     Active Substance: CALCIUM\CHOLECALCIFEROL
     Dosage: 1.25G (GRAMS)/800 UNITS; CALCIUMCARB/COLECALC CHEWTB 1.25G/800IE (500MG CA) / CALCI CHEW D3 CHEWABLE
  4. METOPROLOL SUCCINATE [Concomitant]
     Active Substance: METOPROLOL SUCCINATE
     Dosage: FORM STRENGTH: 100 MG  / BRAND NAME NOT SPECIFIED, THERAPY START DATE AND END DATE: ASKU

REACTIONS (1)
  - Tubulointerstitial nephritis [Recovering/Resolving]
